FAERS Safety Report 15778233 (Version 5)
Quarter: 2020Q1

REPORT INFORMATION
  Report Type: Report from Study
  Country: US (occurrence: US)
  Receive Date: 20181231
  Receipt Date: 20200207
  Transmission Date: 20200409
  Serious: Yes (Hospitalization, Disabling, Other)
  Sender: FDA-Public Use
  Company Number: US-ACTELION-A-NJ2018-183998

PATIENT
  Age: 50 Year
  Sex: Male

DRUGS (1)
  1. OPSUMIT [Suspect]
     Active Substance: MACITENTAN
     Indication: PULMONARY ARTERIAL HYPERTENSION
     Dosage: 10 MG, QD
     Route: 048
     Dates: start: 20181025

REACTIONS (6)
  - Dialysis [Unknown]
  - Abdominal pain [Unknown]
  - Renal failure [Unknown]
  - Pneumonia [Unknown]
  - Pulmonary hypertension [Unknown]
  - Surgery [Unknown]

NARRATIVE: CASE EVENT DATE: 201908
